FAERS Safety Report 14217785 (Version 1)
Quarter: 2017Q4

REPORT INFORMATION
  Report Type: Spontaneous
  Country: US (occurrence: US)
  Receive Date: 20171123
  Receipt Date: 20171123
  Transmission Date: 20180321
  Serious: No
  Sender: FDA-Public Use
  Company Number: US-BEH-2017085092

PATIENT
  Sex: Female
  Weight: 68.27 kg

DRUGS (11)
  1. TRIVORA-28 [Concomitant]
     Route: 065
  2. VITAMIN D                          /00107901/ [Concomitant]
     Active Substance: ERGOCALCIFEROL
     Route: 065
  3. HAEGARDA [Suspect]
     Active Substance: HUMAN C1-ESTERASE INHIBITOR
     Indication: PROPHYLAXIS
     Dosage: UNK
     Route: 058
  4. ZYRTEC [Concomitant]
     Active Substance: CETIRIZINE HYDROCHLORIDE
     Route: 065
  5. FISH OIL [Concomitant]
     Active Substance: FISH OIL
     Route: 065
  6. CALCIUM [Concomitant]
     Active Substance: CALCIUM
     Route: 065
  7. HAEGARDA [Suspect]
     Active Substance: HUMAN C1-ESTERASE INHIBITOR
     Indication: HEREDITARY ANGIOEDEMA
     Dosage: 4000 IU, EVERY 3-4 DAYS
     Route: 058
     Dates: start: 20171018
  8. BUSPIRONE [Concomitant]
     Active Substance: BUSPIRONE HYDROCHLORIDE
     Route: 065
  9. SINGULAIR [Concomitant]
     Active Substance: MONTELUKAST SODIUM
     Route: 065
  10. FIRAZYR [Concomitant]
     Active Substance: ICATIBANT ACETATE
     Route: 065
  11. EPINEPHRINE. [Concomitant]
     Active Substance: EPINEPHRINE
     Route: 065

REACTIONS (1)
  - Sinusitis [Unknown]
